FAERS Safety Report 5347579-3 (Version None)
Quarter: 2007Q2

REPORT INFORMATION
  Report Type: 
  Country: None (occurrence: None)
  Receive Date: 20070606
  Receipt Date: 20070604
  Transmission Date: 20071010
  Serious: Yes (Hospitalization, Other)
  Sender: FDA-Public Use
  Company Number: HQWYE604017APR07

PATIENT
  Sex: Male

DRUGS (8)
  1. CORDARONE [Suspect]
     Indication: VENTRICULAR TACHYCARDIA
     Route: 048
     Dates: start: 20050301, end: 20061201
  2. MARCUMAR [Concomitant]
     Indication: ATRIAL FIBRILLATION
     Dosage: DOSE UNKNOWN
     Route: 048
     Dates: start: 20050301
  3. FUROSEMIDE [Concomitant]
     Dosage: DOSE UNKNOWN
     Route: 065
  4. SIMVASTATIN [Concomitant]
     Indication: HYPERCHOLESTEROLAEMIA
     Route: 048
     Dates: start: 20050301
  5. SIMVASTATIN [Concomitant]
     Indication: CORONARY ARTERY DISEASE
  6. METOPROLOL SUCCINATE [Concomitant]
     Dosage: DOSE UNKNOWN
     Route: 048
  7. RAMIPRIL [Concomitant]
     Indication: CARDIAC FAILURE
     Dosage: 7.5 MG, FREQUENCY UNSPECIFIED
     Route: 048
     Dates: start: 20050301
  8. THIAMAZOLE [Concomitant]
     Indication: CARDIAC FAILURE
     Dosage: 12.5 MG, FREQUENCY UNSPECIFIED
     Route: 048
     Dates: start: 20050301

REACTIONS (3)
  - HYPERTHYROIDISM [None]
  - LYMPHOMA [None]
  - SUNBURN [None]
